FAERS Safety Report 7319835-0 (Version None)
Quarter: 2011Q1

REPORT INFORMATION
  Report Type: 
  Country: None (occurrence: None)
  Receive Date: 20110228
  Receipt Date: 20101015
  Transmission Date: 20110831
  Serious: No
  Sender: FDA-Public Use
  Company Number: A0887105A

PATIENT
  Sex: Female

DRUGS (9)
  1. ASPIRIN [Concomitant]
  2. LAMOTRIGINE [Suspect]
     Indication: MIGRAINE PROPHYLAXIS
     Dosage: 100MG TWICE PER DAY
     Route: 048
  3. SYNTHROID [Concomitant]
  4. DARVOCET-N 100 [Concomitant]
  5. FLURAZEPAM [Concomitant]
  6. PRAVASTATIN [Concomitant]
  7. SINGULAIR [Concomitant]
  8. ALBUTEROL [Concomitant]
  9. LAMICTAL [Suspect]
     Indication: MIGRAINE PROPHYLAXIS
     Dosage: 100MG TWICE PER DAY
     Route: 048
     Dates: start: 20070101

REACTIONS (4)
  - MALAISE [None]
  - THERAPEUTIC RESPONSE UNEXPECTED [None]
  - DRUG INEFFECTIVE [None]
  - HEADACHE [None]
